FAERS Safety Report 6075562-1 (Version None)
Quarter: 2009Q1

REPORT INFORMATION
  Report Type: 
  Country: None (occurrence: None)
  Receive Date: 20090210
  Receipt Date: 20090210
  Transmission Date: 20090719
  Serious: Yes (Death, Hospitalization)
  Sender: FDA-Public Use
  Company Number: None

PATIENT
  Age: 73 Year
  Sex: Female
  Weight: 56.6996 kg

DRUGS (1)
  1. DIGOXIN [Suspect]

REACTIONS (8)
  - CONFUSIONAL STATE [None]
  - DISORIENTATION [None]
  - DIZZINESS [None]
  - HEADACHE [None]
  - LUNG INFECTION [None]
  - MALAISE [None]
  - NAUSEA [None]
  - VOMITING [None]
